FAERS Safety Report 6772650-9 (Version None)
Quarter: 2010Q2

REPORT INFORMATION
  Report Type: 
  Country: None (occurrence: None)
  Receive Date: 20100616
  Receipt Date: 20090619
  Transmission Date: 20101027
  Serious: No
  Sender: FDA-Public Use
  Company Number: US-ASTRAZENECA-2009UW16178

PATIENT
  Age: 25881 Day
  Sex: Male
  Weight: 72.6 kg

DRUGS (8)
  1. PULMICORT RESPULES [Suspect]
     Indication: SILICOSIS
     Dosage: 1 MG/ML
     Route: 055
  2. PULMICORT RESPULES [Suspect]
     Indication: ASTHMA
     Dosage: 1 MG/ML
     Route: 055
  3. LISINOPRIL [Concomitant]
     Indication: HYPERTENSION
  4. SPIRIVA [Concomitant]
     Indication: ASTHMA
  5. PERFOROMIST [Concomitant]
  6. ATENOLOL [Concomitant]
  7. VALIUM [Concomitant]
  8. ANTIVERT [Concomitant]
     Indication: VERTIGO

REACTIONS (1)
  - HYPERTENSION [None]
